FAERS Safety Report 25540560 (Version 1)
Quarter: 2025Q3

REPORT INFORMATION
  Report Type: Spontaneous
  Country: EU (occurrence: EU)
  Receive Date: 20250710
  Receipt Date: 20250710
  Transmission Date: 20251021
  Serious: Yes (Other)
  Sender: ELI LILLY AND COMPANY
  Company Number: EU-ELI_LILLY_AND_COMPANY-IT202507004375

PATIENT
  Sex: Female

DRUGS (2)
  1. ABEMACICLIB [Suspect]
     Active Substance: ABEMACICLIB
     Indication: Metastatic neoplasm
     Route: 065
     Dates: start: 20250519
  2. FULVESTRANT [Concomitant]
     Active Substance: FULVESTRANT
     Indication: Metastatic neoplasm
     Dates: start: 20250519

REACTIONS (2)
  - Hypertransaminasaemia [Not Recovered/Not Resolved]
  - Tumour marker increased [Not Recovered/Not Resolved]

NARRATIVE: CASE EVENT DATE: 20250601
